FAERS Safety Report 8785239 (Version 1)
Quarter: 2012Q4

REPORT INFORMATION
  Report Type: 
  Country: US (occurrence: US)
  Receive Date: 20120914
  Receipt Date: 20120914
  Transmission Date: 20130627
  Serious: No
  Sender: FDA-Public Use
  Company Number: US-B.I. PHARMACEUTICALS,INC./RIDGEFIELD-2012-BP-22262BP

PATIENT
  Sex: Female
  Weight: 59 kg

DRUGS (4)
  1. PRADAXA [Suspect]
     Indication: ATRIAL FIBRILLATION
     Dosage: 300 mg
     Route: 048
     Dates: start: 201109
  2. ZANTAC COOL MINT (TABLETS) [Suspect]
     Indication: DYSPEPSIA
     Route: 048
     Dates: start: 2005
  3. NEXIUM [Concomitant]
     Indication: DYSPEPSIA
     Dosage: 30 mg
     Route: 048
     Dates: start: 2007
  4. LIPITOR [Concomitant]
     Indication: CEREBROVASCULAR ACCIDENT PROPHYLAXIS
     Dosage: 20 mg
     Route: 048

REACTIONS (1)
  - Dyspepsia [Not Recovered/Not Resolved]
